FAERS Safety Report 4495785-2 (Version None)
Quarter: 2004Q4

REPORT INFORMATION
  Report Type: 
  Country: None (occurrence: None)
  Receive Date: 20041104
  Receipt Date: 20041026
  Transmission Date: 20050328
  Serious: Yes (Disabling)
  Sender: FDA-Public Use
  Company Number: 200408192

PATIENT
  Age: 56 Year
  Sex: Female

DRUGS (16)
  1. BOTOX PURIFIED NEUROTOXIN COMPLEX [Suspect]
     Indication: FACIAL SPASM
     Dates: start: 19960101, end: 20020101
  2. CELEBREX [Concomitant]
  3. PREVACID [Concomitant]
  4. ACIPHEX [Concomitant]
  5. VALTREX [Concomitant]
  6. PREDNISONE [Concomitant]
  7. PRILOSEC [Concomitant]
  8. ACYCLOVIR [Concomitant]
  9. ALPRAZOLAM [Concomitant]
  10. HYOSCYAMINE [Concomitant]
  11. NOTRIPTYLINE [Concomitant]
  12. MONODOX [Concomitant]
  13. ESTRATEST H.S. [Concomitant]
  14. CEPHALEXIN [Concomitant]
  15. ZYRTEC [Concomitant]
  16. CLOBETASOL [Concomitant]

REACTIONS (20)
  - ACTIVITIES OF DAILY LIVING IMPAIRED [None]
  - ANXIETY [None]
  - ASTHENIA [None]
  - DIFFICULTY IN WALKING [None]
  - DROOLING [None]
  - DYSARTHRIA [None]
  - EYE DISORDER [None]
  - EYE INFLAMMATION [None]
  - EYELID PTOSIS [None]
  - FACIAL NERVE DISORDER [None]
  - FACIAL PALSY [None]
  - IMPAIRED WORK ABILITY [None]
  - MOBILITY DECREASED [None]
  - MUSCLE SPASMS [None]
  - MUSCLE TWITCHING [None]
  - MUSCULAR WEAKNESS [None]
  - NEUROLOGICAL SYMPTOM [None]
  - NEUROPATHY PERIPHERAL [None]
  - PAIN [None]
  - PHOTOSENSITIVITY REACTION [None]
